FAERS Safety Report 9523765 (Version 1)
Quarter: 2013Q3

REPORT INFORMATION
  Report Type: Report from Study
  Country: BR (occurrence: BR)
  Receive Date: 20130915
  Receipt Date: 20130915
  Transmission Date: 20140515
  Serious: Yes (Other)
  Sender: FDA-Public Use
  Company Number: PHHY2013BR101981

PATIENT
  Sex: Male
  Weight: 50 kg

DRUGS (4)
  1. EXELON PATCH [Suspect]
     Indication: MEMORY IMPAIRMENT
     Dosage: 4.6 MG DAILY
     Route: 062
  2. EXELON PATCH [Suspect]
     Dosage: 9.5 MG DAILY
     Route: 062
  3. EXELON PATCH [Suspect]
     Dosage: 13.3 MG DAILY
     Route: 062
  4. MVI [Concomitant]
     Dosage: UNK UKN, UNK

REACTIONS (3)
  - Cerebrovascular accident [Not Recovered/Not Resolved]
  - Aggression [Not Recovered/Not Resolved]
  - Drug ineffective [Unknown]
